FAERS Safety Report 14693920 (Version 1)
Quarter: 2018Q1

REPORT INFORMATION
  Report Type: Spontaneous
  Country: US (occurrence: US)
  Receive Date: 20180327
  Receipt Date: 20180327
  Transmission Date: 20180509
  Serious: Yes (Life-Threatening, Hospitalization, Other)
  Sender: FDA-Public Use
  Company Number: None

PATIENT
  Age: 69 Year
  Sex: Female
  Weight: 74.39 kg

DRUGS (5)
  1. MESALAMINE. [Suspect]
     Active Substance: MESALAMINE
     Indication: COLITIS
     Dates: start: 20171201, end: 20171214
  2. BUDESONIDE. [Concomitant]
     Active Substance: BUDESONIDE
  3. CABERGOLINE. [Concomitant]
     Active Substance: CABERGOLINE
  4. LORAZEPAM. [Concomitant]
     Active Substance: LORAZEPAM
  5. LEVOTHYROXINE. [Concomitant]
     Active Substance: LEVOTHYROXINE

REACTIONS (5)
  - Pain [None]
  - Vomiting [None]
  - Pancreatitis [None]
  - Abdominal pain upper [None]
  - Hepatic enzyme increased [None]
